FAERS Safety Report 10877336 (Version 4)
Quarter: 2015Q2

REPORT INFORMATION
  Report Type: Spontaneous
  Country: GB (occurrence: GB)
  Receive Date: 20150302
  Receipt Date: 20150513
  Transmission Date: 20150821
  Serious: Yes (Death, Other)
  Sender: FDA-Public Use
  Company Number: GB-DRREDDYS-GER/UKI/15/0046354

PATIENT
  Age: 39 Year
  Sex: Female

DRUGS (8)
  1. QUETIAPINE [Suspect]
     Active Substance: QUETIAPINE
     Dosage: 500MG ONCE AT NIGHT 25-50MG THREE TIMES DAILY/ AS NECESSARY
     Dates: start: 201502
  2. LAMOTRIGINE. [Suspect]
     Active Substance: LAMOTRIGINE
     Route: 048
     Dates: start: 20150207, end: 20150209
  3. QUETIAPINE [Suspect]
     Active Substance: QUETIAPINE
     Indication: BIPOLAR DISORDER
     Dosage: 400MG ONCE AT NIGHT PLUS 25-50MG THREE TIMES DAILY / AS NECESSARY
     Dates: start: 20150204
  4. QUETIAPINE [Suspect]
     Active Substance: QUETIAPINE
     Dates: start: 20150204, end: 201502
  5. LORAZEPAM. [Concomitant]
     Active Substance: LORAZEPAM
     Indication: ANXIETY
     Dosage: 0.5-1MG TWICE DAILY /AS NECESSARY FOR 3 DAYS FOR SEVERE ANXIETY
     Dates: start: 20150204
  6. LAMOTRIGINE. [Suspect]
     Active Substance: LAMOTRIGINE
     Indication: BIPOLAR DISORDER
     Dosage: FOR 2 WEEKS
     Route: 048
     Dates: start: 20150106
  7. LAMOTRIGINE. [Suspect]
     Active Substance: LAMOTRIGINE
     Dosage: FOR 2 WEEKS
     Route: 048
     Dates: start: 201501
  8. MIRTAZAPINE. [Suspect]
     Active Substance: MIRTAZAPINE
     Indication: PRODUCT USED FOR UNKNOWN INDICATION

REACTIONS (9)
  - Paranoia [Not Recovered/Not Resolved]
  - Depression [Not Recovered/Not Resolved]
  - Persecutory delusion [Not Recovered/Not Resolved]
  - Sedation [Unknown]
  - Seizure [Fatal]
  - Dizziness [Unknown]
  - Overdose [Fatal]
  - Cardiac arrest [Fatal]
  - Drug intolerance [Unknown]

NARRATIVE: CASE EVENT DATE: 20150204
